FAERS Safety Report 5296259-1 (Version None)
Quarter: 2007Q2

REPORT INFORMATION
  Report Type: 
  Country: None (occurrence: None)
  Receive Date: 20070406
  Receipt Date: 20070328
  Transmission Date: 20071010
  Serious: Yes (Other)
  Sender: FDA-Public Use
  Company Number: GXKR2007DE02902

PATIENT
  Age: 19 Year
  Sex: Male

DRUGS (2)
  1. LOPEDIUM AKUT BEI AKUTEM DURCHFALL (NGX)(LOPERAMIDE) CAPSULE, 2MG [Suspect]
     Dosage: ORAL
     Route: 048
  2. IMODIUM [Suspect]

REACTIONS (1)
  - DRUG ABUSER [None]
